FAERS Safety Report 14965144 (Version 1)
Quarter: 2018Q2

REPORT INFORMATION
  Report Type: Spontaneous
  Country: US (occurrence: US)
  Receive Date: 20180601
  Receipt Date: 20180601
  Transmission Date: 20180711
  Serious: No
  Sender: FDA-Public Use
  Company Number: US-BAYER-2018-099356

PATIENT
  Sex: Female
  Weight: 52 kg

DRUGS (6)
  1. PROGESTERON [Concomitant]
     Active Substance: PROGESTERONE
  2. VITAMIN D [Concomitant]
     Active Substance: CHOLECALCIFEROL
  3. MIRALAX [Suspect]
     Active Substance: POLYETHYLENE GLYCOL 3350
     Indication: GASTROINTESTINAL DISORDER
     Dosage: 1-2 DOSES DAILY DOSE
     Route: 048
  4. AQUAPHOR ANTIBIOTIC [Concomitant]
  5. CITRUCEL [Concomitant]
     Active Substance: METHYLCELLULOSE (4000 MPA.S)
  6. SENNA LEAF [Concomitant]
     Active Substance: SENNA LEAF

REACTIONS (5)
  - Product prescribing issue [Unknown]
  - Product prescribing issue [Unknown]
  - Incorrect dosage administered [Unknown]
  - Gastrointestinal motility disorder [Unknown]
  - Product use issue [Unknown]

NARRATIVE: CASE EVENT DATE: 201801
